FAERS Safety Report 5618497-8 (Version None)
Quarter: 2008Q1

REPORT INFORMATION
  Report Type: 
  Country: None (occurrence: None)
  Receive Date: 20080207
  Receipt Date: 20080131
  Transmission Date: 20080703
  Serious: Yes (Death)
  Sender: FDA-Public Use
  Company Number: B0506800A

PATIENT
  Sex: Male

DRUGS (8)
  1. WELLBUTRIN [Suspect]
     Indication: DEPRESSION
     Dates: start: 20070913, end: 20070923
  2. NOZINAN [Suspect]
     Indication: DRUG USE FOR UNKNOWN INDICATION
     Dosage: 50MG PER DAY
     Route: 065
     Dates: start: 20070920, end: 20070922
  3. TEMESTA [Concomitant]
     Dosage: 5.5MG PER DAY
     Route: 065
     Dates: start: 20070912, end: 20070917
  4. DOMINAL FORTE [Concomitant]
     Dosage: 80MG PER DAY
     Route: 065
     Dates: start: 20070912, end: 20070919
  5. OXAZEPAM [Concomitant]
     Route: 065
     Dates: start: 20070918, end: 20070923
  6. SELOKEN [Concomitant]
     Dosage: 47.5MG PER DAY
     Route: 065
  7. THROMBOASS [Concomitant]
     Dosage: 100MG PER DAY
     Route: 065
     Dates: start: 20070912, end: 20070923
  8. DIGIMERCK [Concomitant]
     Dosage: .07MG PER DAY
     Route: 065
     Dates: start: 20070912, end: 20070923

REACTIONS (1)
  - COMPLETED SUICIDE [None]
